FAERS Safety Report 7731393-5 (Version None)
Quarter: 2011Q3

REPORT INFORMATION
  Report Type: 
  Country: None (occurrence: None)
  Receive Date: 20110906
  Receipt Date: 20110830
  Transmission Date: 20111222
  Serious: Yes (Hospitalization)
  Sender: FDA-Public Use
  Company Number: CH-PFIZER INC-2011132053

PATIENT
  Age: 36 Year
  Sex: Female

DRUGS (23)
  1. MOTILIUM [Concomitant]
     Indication: VOMITING
  2. SCOPOLAMINE [Concomitant]
     Dosage: 10 MG, AS NEEDED
     Route: 048
     Dates: start: 20110308, end: 20110426
  3. MEROPENEM [Suspect]
     Indication: PYREXIA
     Dosage: 1 G, 3X/DAY
     Route: 041
     Dates: start: 20110407, end: 20110414
  4. ZOLPIDEM [Concomitant]
     Indication: SLEEP DISORDER
     Dosage: 10 MG, AS NEEDED
     Route: 048
     Dates: start: 20110308, end: 20110426
  5. NEXIUM [Concomitant]
     Indication: NAUSEA
     Dosage: 40 MG, 1X/DAY
     Route: 048
     Dates: start: 20110308
  6. ACETAMINOPHEN [Concomitant]
     Indication: PAIN
     Dosage: 500 MG, AS NEEDED
     Route: 040
     Dates: start: 20110308, end: 20110426
  7. CYTOSAR-U [Suspect]
     Dosage: 1000 MG/M2, 2X/DAY (DAY 1-6)
     Route: 041
     Dates: start: 20110329, end: 20110403
  8. AMSIDYL [Suspect]
     Indication: MYELODYSPLASTIC SYNDROME
     Dosage: 120 MG/M2, 1X/DAY (DAY 4-6)
     Route: 041
     Dates: start: 20110401, end: 20110403
  9. PIPERACILLIN AND TAZOBACTAM [Concomitant]
     Indication: PYREXIA
     Dosage: 2.25 MG, 3X/DAY
     Dates: start: 20110326, end: 20110406
  10. METOCLOPRAMIDE HYDROCHLORIDE [Concomitant]
     Indication: NAUSEA
     Dosage: 10 MG, 3X/DAY
     Route: 048
     Dates: start: 20110308, end: 20110411
  11. MOTILIUM [Concomitant]
     Indication: NAUSEA
     Dosage: 10 MG, AS NEEDED
     Route: 060
     Dates: start: 20110412, end: 20110421
  12. METOCLOPRAMIDE HYDROCHLORIDE [Concomitant]
     Indication: VOMITING
  13. NEXIUM [Concomitant]
     Indication: VOMITING
  14. PRIMOLUT-N [Concomitant]
     Dosage: 5 MG, 4X/DAY
     Route: 048
  15. FLAGYL [Concomitant]
     Indication: PYREXIA
     Dosage: 500 MG, 3X/DAY
     Dates: start: 20110410, end: 20110503
  16. IDARUBICIN HYDROCHLORIDE [Suspect]
     Indication: MYELODYSPLASTIC SYNDROME
     Dosage: 12 MG/M2, 1X/DAY (DAY 1-3)
     Route: 041
     Dates: start: 20110310, end: 20110312
  17. ESCITALOPRAM [Suspect]
     Indication: BIPOLAR DISORDER
     Dosage: 10 MG, 1X/DAY
     Route: 048
     Dates: start: 20110308, end: 20110421
  18. FAMVIR [Suspect]
     Indication: PYREXIA
     Dosage: 500 MG, 2X/DAY
     Route: 048
     Dates: start: 20110405, end: 20110412
  19. PIPERACILLIN AND TAZOBACTAM [Concomitant]
     Dosage: 2.25 MG, ONCE PER 3 DAYS
     Dates: start: 20110415, end: 20110426
  20. CYTOSAR-U [Suspect]
     Indication: MYELODYSPLASTIC SYNDROME
     Dosage: 1000 MG/M2, 2X/DAY (DAY 1-6)
     Route: 041
     Dates: start: 20110310, end: 20110316
  21. CANCIDAS [Suspect]
     Indication: PYREXIA
     Dosage: 70 MG, 1X/DAY
     Route: 048
     Dates: start: 20110407, end: 20110412
  22. DEXAMETHASONE [Concomitant]
     Dosage: 8 MG, 3X/DAY
     Route: 048
     Dates: start: 20110301, end: 20110301
  23. VFEND [Concomitant]
     Indication: PYREXIA
     Dosage: 1 G, 2X/DAY
     Route: 048
     Dates: start: 20110413, end: 20110421

REACTIONS (7)
  - RASH [None]
  - HEPATOCELLULAR INJURY [None]
  - COAGULOPATHY [None]
  - SEROTONIN SYNDROME [None]
  - CYTARABINE SYNDROME [None]
  - RHABDOMYOLYSIS [None]
  - MYALGIA [None]
